FAERS Safety Report 8291043-9 (Version None)
Quarter: 2012Q2

REPORT INFORMATION
  Report Type: 
  Country: None (occurrence: None)
  Receive Date: 20120417
  Receipt Date: 20120206
  Transmission Date: 20120825
  Serious: No
  Sender: FDA-Public Use
  Company Number: US-ASTRAZENECA-2010SE26310

PATIENT
  Age: 73 Year
  Sex: Female

DRUGS (4)
  1. OXYCODONE HCL [Concomitant]
  2. NEXIUM [Suspect]
     Route: 048
  3. CRESTOR [Suspect]
     Route: 048
  4. ACCOLATE [Suspect]
     Route: 048

REACTIONS (9)
  - DYSPNOEA [None]
  - NAUSEA [None]
  - BACK PAIN [None]
  - PAIN [None]
  - BLADDER DISORDER [None]
  - SPINAL DEFORMITY [None]
  - MALAISE [None]
  - FALL [None]
  - LOSS OF CONSCIOUSNESS [None]
